FAERS Safety Report 5469814-3 (Version None)
Quarter: 2007Q3

REPORT INFORMATION
  Report Type: 
  Country: None (occurrence: None)
  Receive Date: 20070927
  Receipt Date: 20070611
  Transmission Date: 20080115
  Serious: No
  Sender: FDA-Public Use
  Company Number: US-BRISTOL-MYERS SQUIBB COMPANY-13810213

PATIENT
  Sex: Male

DRUGS (1)
  1. BARACLUDE [Suspect]
     Route: 050

REACTIONS (2)
  - PREGNANCY [None]
  - TRANSMISSION OF DRUG VIA SEMEN [None]
